FAERS Safety Report 8537750-1 (Version None)
Quarter: 2012Q3

REPORT INFORMATION
  Report Type: 
  Country: None (occurrence: None)
  Receive Date: 20120725
  Receipt Date: 20120713
  Transmission Date: 20120928
  Serious: Yes (Other)
  Sender: FDA-Public Use
  Company Number: US-MYLANLABS-2012S1014268

PATIENT
  Age: 47 Year
  Sex: Male

DRUGS (3)
  1. PROGRAF [Suspect]
     Dates: start: 20120601
  2. PROGRAF [Suspect]
     Indication: RENAL TRANSPLANT
     Dates: start: 20101001
  3. TACROLIMUS [Suspect]
     Indication: RENAL TRANSPLANT
     Dates: end: 20120601

REACTIONS (3)
  - DRUG EFFECT DECREASED [None]
  - IMMUNOSUPPRESSANT DRUG LEVEL DECREASED [None]
  - ORGAN FAILURE [None]
